FAERS Safety Report 4448402-1 (Version None)
Quarter: 2004Q3

REPORT INFORMATION
  Report Type: 
  Country: None (occurrence: None)
  Receive Date: 20040909
  Receipt Date: 20040824
  Transmission Date: 20050211
  Serious: Yes (Other)
  Sender: FDA-Public Use
  Company Number: 2004230381CA

PATIENT
  Age: 42 Year
  Sex: Female
  Weight: 59 kg

DRUGS (1)
  1. DEPO-PROVERA [Suspect]
     Indication: PREMENSTRUAL SYNDROME
     Dosage: 150 MG,1ST INJ, INTRAMUSCULAR
     Route: 030
     Dates: start: 20040721, end: 20040721

REACTIONS (3)
  - CHEST PAIN [None]
  - DYSPNOEA AT REST [None]
  - DYSPNOEA EXERTIONAL [None]
